FAERS Safety Report 6125889-X (Version None)
Quarter: 2009Q1

REPORT INFORMATION
  Report Type: 
  Country: None (occurrence: None)
  Receive Date: 20090320
  Receipt Date: 20090313
  Transmission Date: 20090719
  Serious: Yes (Life-Threatening, Hospitalization)
  Sender: FDA-Public Use
  Company Number: ES-BRISTOL-MYERS SQUIBB COMPANY-14548374

PATIENT
  Age: 56 Year
  Sex: Male
  Weight: 59 kg

DRUGS (7)
  1. ERBITUX [Suspect]
     Indication: HEAD AND NECK CANCER
     Dosage: 400 MG/M2 1 IN 1 ONCE ON 28JAN09+ 250 MG/M2 FROM 04FEB-25FEB09(MOST RECENT INFUSION)(DURN-21DAYS)
     Route: 042
     Dates: start: 20090128
  2. VALPROIC ACID [Suspect]
     Indication: EPILEPSY
     Dosage: 1500 MG (500 MG, 1 IN 8 HR)
     Route: 048
     Dates: start: 20080601, end: 20090303
  3. FENTANYL-25 [Suspect]
     Indication: ANALGESIA
     Dosage: 600 MCG (25 MCG, 1 IN 1 HR)
     Route: 062
     Dates: start: 20090225, end: 20090303
  4. RADIATION THERAPY [Suspect]
     Indication: HEAD AND NECK CANCER
  5. IBUPROFEN TABLETS [Concomitant]
     Indication: ANALGESIA
     Dosage: 1800 MG (600 MG 1 IN 8HR)
     Route: 048
     Dates: start: 20090128, end: 20090303
  6. DIPYRONE INJ [Concomitant]
     Indication: ANALGESIA
     Dosage: 1725(575 MG 1 IN 8HR)
     Route: 048
     Dates: start: 20090225, end: 20090303
  7. OMEPRAZOLE [Concomitant]
     Indication: PROPHYLAXIS
     Dosage: THERAPY ONGOING
     Route: 048
     Dates: start: 20090128

REACTIONS (4)
  - HEPATIC FAILURE [None]
  - MUCOSAL INFLAMMATION [None]
  - MYOCARDITIS [None]
  - RENAL FAILURE [None]
